FAERS Safety Report 7931016-6 (Version None)
Quarter: 2011Q4

REPORT INFORMATION
  Report Type: 
  Country: None (occurrence: None)
  Receive Date: 20111121
  Receipt Date: 20111114
  Transmission Date: 20120403
  Serious: Yes (Hospitalization)
  Sender: FDA-Public Use
  Company Number: US-ROXANE LABORATORIES, INC.-2011-RO-01644RO

PATIENT
  Age: 61 Year
  Sex: Male

DRUGS (5)
  1. HYDROCHLOROTHIAZIDE [Suspect]
     Dosage: 25 MG
  2. LISINOPRIL [Suspect]
     Dosage: 20 MG
  3. GLYBURIDE [Suspect]
     Dosage: 5 MG
  4. METHADONE HCL [Suspect]
     Indication: DRUG WITHDRAWAL MAINTENANCE THERAPY
     Dosage: 110 MG
  5. METFORMIN HCL [Suspect]
     Dosage: 2000 MG

REACTIONS (5)
  - TORSADE DE POINTES [None]
  - HYPOMAGNESAEMIA [None]
  - LEFT VENTRICULAR DYSFUNCTION [None]
  - ELECTROCARDIOGRAM QT PROLONGED [None]
  - HYPOKALAEMIA [None]
